FAERS Safety Report 14991460 (Version 1)
Quarter: 2018Q2

REPORT INFORMATION
  Report Type: Spontaneous
  Country: US (occurrence: US)
  Receive Date: 20180608
  Receipt Date: 20180608
  Transmission Date: 20180711
  Serious: No
  Sender: FDA-Public Use
  Company Number: US-GLAXOSMITHKLINE-US2018098240

PATIENT
  Age: 83 Year
  Sex: Male

DRUGS (1)
  1. DICLOFENAC SODIUM GEL [Suspect]
     Active Substance: DICLOFENAC SODIUM
     Indication: MYALGIA
     Dosage: UNK UNK, BID
     Dates: start: 20180526, end: 20180531

REACTIONS (9)
  - Rash [Unknown]
  - Erythema [Unknown]
  - Local reaction [Unknown]
  - Product use issue [Unknown]
  - Ill-defined disorder [Unknown]
  - Swelling [Unknown]
  - Burning sensation [Unknown]
  - Acne [Unknown]
  - Pruritus [Unknown]

NARRATIVE: CASE EVENT DATE: 20180526
